FAERS Safety Report 12865983 (Version 1)
Quarter: 2016Q4

REPORT INFORMATION
  Report Type: Spontaneous
  Country: BR (occurrence: BR)
  Receive Date: 20161020
  Receipt Date: 20161020
  Transmission Date: 20170207
  Serious: Yes (Hospitalization, Other)
  Sender: FDA-Public Use
  Company Number: BR-GLAXOSMITHKLINE-BR2016GSK149044

PATIENT
  Age: 11 Year
  Sex: Female
  Weight: 10.4 kg

DRUGS (2)
  1. FLIXOTIDE (CFC-FREE) [Suspect]
     Active Substance: FLUTICASONE PROPIONATE
     Indication: ASTHMA
     Dosage: 2 PUFF(S), BID
     Route: 055
  2. AEROLIN [Suspect]
     Active Substance: ALBUTEROL
     Indication: ASTHMA

REACTIONS (4)
  - Product quality issue [Unknown]
  - Off label use [Unknown]
  - Product use issue [Unknown]
  - Hospitalisation [Unknown]
